FAERS Safety Report 12438237 (Version 2)
Quarter: 2016Q2

REPORT INFORMATION
  Report Type: Other
  Country: IT (occurrence: IT)
  Receive Date: 20160606
  Receipt Date: 20160608
  Transmission Date: 20160815
  Serious: Yes (Hospitalization)
  Sender: FDA-Public Use
  Company Number: IT-MYLANLABS-2016M1022965

PATIENT

DRUGS (2)
  1. DILTIAZEM [Suspect]
     Active Substance: DILTIAZEM
     Indication: MYOCARDIAL ISCHAEMIA
     Dosage: 120 MG, QD
     Route: 048
     Dates: start: 20160131, end: 20160201
  2. DILTIAZEM [Suspect]
     Active Substance: DILTIAZEM
     Dosage: 60 MG, TID

REACTIONS (3)
  - Atrioventricular block second degree [Unknown]
  - Sinus bradycardia [Unknown]
  - Pericardial effusion [Unknown]

NARRATIVE: CASE EVENT DATE: 20160131
